FAERS Safety Report 12199518 (Version 1)
Quarter: 2016Q1

REPORT INFORMATION
  Report Type: Spontaneous
  Country: US (occurrence: US)
  Receive Date: 20160322
  Receipt Date: 20160322
  Transmission Date: 20160526
  Serious: No
  Sender: FDA-Public Use
  Company Number: US-BAYER-2016-054368

PATIENT
  Age: 76 Year
  Sex: Male
  Weight: 77.98 kg

DRUGS (4)
  1. ALEVE [Suspect]
     Active Substance: NAPROXEN SODIUM
     Indication: ARTHRITIS
     Dosage: 2 DF, BID-EVERY 12 HOURS
     Route: 048
     Dates: start: 20160314
  2. VITAMIN D [Concomitant]
     Active Substance: CHOLECALCIFEROL
  3. AVODART [Concomitant]
     Active Substance: DUTASTERIDE
  4. MAGNESIUM [Concomitant]
     Active Substance: MAGNESIUM

REACTIONS (1)
  - Product use issue [None]

NARRATIVE: CASE EVENT DATE: 20160314
